FAERS Safety Report 9746670 (Version 2)
Quarter: 2013Q4

REPORT INFORMATION
  Report Type: Spontaneous
  Country: US (occurrence: US)
  Receive Date: 20131211
  Receipt Date: 20131213
  Transmission Date: 20140711
  Serious: No
  Sender: FDA-Public Use
  Company Number: US-BAYER-2013-151200

PATIENT
  Age: 64 Year
  Sex: Male
  Weight: 68 kg

DRUGS (2)
  1. ALEVE CAPLET [Suspect]
     Indication: BACK PAIN
     Dosage: 1 DF, BID
     Route: 048
     Dates: start: 201311
  2. ALEVE CAPLET [Suspect]
     Indication: INFLAMMATION

REACTIONS (1)
  - Incorrect drug administration duration [None]
